FAERS Safety Report 25936756 (Version 1)
Quarter: 2025Q4

REPORT INFORMATION
  Report Type: Spontaneous
  Country: US (occurrence: US)
  Receive Date: 20251017
  Receipt Date: 20251017
  Transmission Date: 20260117
  Serious: Yes (Other)
  Sender: TEVA
  Company Number: US-TEVA-VS-3382100

PATIENT
  Age: 78 Year
  Sex: Female

DRUGS (1)
  1. EPINEPHRINE [Suspect]
     Active Substance: EPINEPHRINE
     Indication: Product used for unknown indication
     Dosage: FORM STRENGTH:  0.3MG/0.3ML
     Route: 065

REACTIONS (1)
  - Product container seal issue [Unknown]

NARRATIVE: CASE EVENT DATE: 20251001
